FAERS Safety Report 7435137-6 (Version None)
Quarter: 2011Q2

REPORT INFORMATION
  Report Type: 
  Country: None (occurrence: None)
  Receive Date: 20110425
  Receipt Date: 20110414
  Transmission Date: 20111010
  Serious: Yes (Other)
  Sender: FDA-Public Use
  Company Number: PHHY2011US30530

PATIENT
  Sex: Female
  Weight: 108.84 kg

DRUGS (14)
  1. NUEDEXTA [Concomitant]
     Indication: AFFECT LABILITY
     Dosage: 1 DF, BID
     Route: 048
  2. SUMATRIPTAN [Concomitant]
     Dosage: 100 MG, UNK
     Route: 048
  3. CYMBALTA [Concomitant]
     Dosage: 2 DF, QD
     Route: 048
  4. NUEDEXTA [Concomitant]
     Dosage: UNK, QD
  5. TOPAMAX [Concomitant]
     Dosage: 100 MG, TID
     Route: 048
  6. CITALOPRAM [Concomitant]
     Dosage: 20 MG, QD
     Route: 048
  7. ASPIRIN [Concomitant]
     Dosage: 81 MG, QD
     Route: 048
  8. ZOCOR [Concomitant]
     Dosage: 40 MG, QD
     Route: 048
  9. NYSTATIN [Concomitant]
     Dosage: 4-6 ML (1/2 DOSE ON EACH SIDE OF MOUTH) 4 TIMES DAILY
     Route: 048
  10. KLONOPIN [Concomitant]
     Dosage: 1 MG, TID
     Route: 048
  11. FLEXERIL [Concomitant]
     Dosage: 10 MG, QID
     Route: 048
  12. GILENYA [Suspect]
     Indication: MULTIPLE SCLEROSIS
     Dosage: 0.5 MG, QD
     Route: 048
     Dates: start: 20110124
  13. MYCELEX [Concomitant]
     Dosage: 10 MG, UNK
     Route: 048
  14. CONTRACEPTIVES NOS [Concomitant]
     Dosage: UNK
     Route: 048

REACTIONS (8)
  - DYSPNOEA EXERTIONAL [None]
  - ABDOMINAL PAIN [None]
  - DIARRHOEA [None]
  - GAIT DISTURBANCE [None]
  - MUSCULOSKELETAL PAIN [None]
  - VISUAL ACUITY REDUCED [None]
  - FALL [None]
  - FAECAL INCONTINENCE [None]
